FAERS Safety Report 25834880 (Version 2)
Quarter: 2025Q4

REPORT INFORMATION
  Report Type: Spontaneous
  Country: JP (occurrence: JP)
  Receive Date: 20250923
  Receipt Date: 20251113
  Transmission Date: 20260118
  Serious: Yes (Hospitalization)
  Sender: AMGEN
  Company Number: JP-KYOWAKIRIN-2025KK017949

PATIENT
  Age: 90 Year
  Sex: Male

DRUGS (1)
  1. DARBEPOETIN ALFA [Suspect]
     Active Substance: DARBEPOETIN ALFA
     Indication: Myelodysplastic syndrome
     Dosage: 240 UG, 1X/WEEK (THE PATIENT WAS RECEIVING 2 SYRINGES, NESP 180MICROGRAMS AND NESP 60MICROGRAMS, FOR
     Route: 058

REACTIONS (1)
  - Hospitalisation [Unknown]
